FAERS Safety Report 9302703 (Version 1)
Quarter: 2013Q2

REPORT INFORMATION
  Report Type: Spontaneous
  Country: FR (occurrence: FR)
  Receive Date: 20130522
  Receipt Date: 20130522
  Transmission Date: 20140414
  Serious: Yes (Other)
  Sender: FDA-Public Use
  Company Number: PHHY2013FR026392

PATIENT
  Age: 53 Year
  Sex: Female

DRUGS (9)
  1. ACLASTA [Suspect]
     Indication: OSTEOPOROSIS
     Dosage: UNK
     Route: 042
     Dates: start: 2011
  2. ACLASTA [Suspect]
     Dosage: UNK
     Route: 042
     Dates: start: 20120726
  3. PRAVASTATIN [Concomitant]
     Dosage: UNK UKN, QD, MORE THAN 3 YEARS
     Route: 048
  4. VIRAMUNE [Concomitant]
     Dosage: UNK UKN, BID, MORE THAN 3 YEARS
     Route: 048
  5. NORVIR [Concomitant]
     Dosage: UNK UKN, QD, MORE THAN 3 YEARS
     Route: 048
  6. PAROXETINE [Concomitant]
     Dosage: UNK UKN, UNK
  7. REYATAZ [Concomitant]
     Dosage: UNK UKN, QD, MORE THAN 3 YEARS
     Route: 048
  8. CELSENTRI [Concomitant]
     Dosage: UNK UKN, BID, MORE THAN 3 YEARS
     Route: 048
  9. DEROXAT [Concomitant]
     Dosage: UNK UKN, BID, MORE THAN 3 YEARS
     Route: 048

REACTIONS (3)
  - Tendon disorder [Recovering/Resolving]
  - Inflammatory pain [Not Recovered/Not Resolved]
  - Nodule [Unknown]
